FAERS Safety Report 17120032 (Version 1)
Quarter: 2019Q4

REPORT INFORMATION
  Report Type: Report from Study
  Country: DE (occurrence: DE)
  Receive Date: 20191206
  Receipt Date: 20191206
  Transmission Date: 20200122
  Serious: Yes (Other)
  Sender: FDA-Public Use
  Company Number: PHHY2015DE055870

PATIENT
  Sex: Female

DRUGS (1)
  1. GILENYA [Suspect]
     Active Substance: FINGOLIMOD HYDROCHLORIDE
     Indication: MULTIPLE SCLEROSIS
     Dosage: UNK UNK, QD
     Route: 048
     Dates: start: 20141210, end: 20180513

REACTIONS (21)
  - Urinary tract infection [Unknown]
  - Lymphocyte count decreased [Unknown]
  - Hepatic enzyme increased [Recovered/Resolved]
  - Gait disturbance [Unknown]
  - Cognitive disorder [Unknown]
  - Depression [Unknown]
  - Swelling face [Recovered/Resolved]
  - Influenza [Unknown]
  - Cough [Unknown]
  - Paraesthesia [Recovered/Resolved]
  - White blood cell count decreased [Unknown]
  - Alopecia [Unknown]
  - Muscle disorder [Unknown]
  - Fatigue [Unknown]
  - Bladder dysfunction [Unknown]
  - Scratch [Recovered/Resolved]
  - Vitamin D deficiency [Unknown]
  - Hypertension [Unknown]
  - Headache [Recovered/Resolved]
  - Hyposmia [Recovered/Resolved]
  - Back pain [Unknown]

NARRATIVE: CASE EVENT DATE: 20141217
